FAERS Safety Report 15887594 (Version 1)
Quarter: 2019Q1

REPORT INFORMATION
  Report Type: Spontaneous
  Country: DE (occurrence: DE)
  Receive Date: 20190130
  Receipt Date: 20190130
  Transmission Date: 20190417
  Serious: Yes (Hospitalization)
  Sender: FDA-Public Use
  Company Number: DE-ACCORD-103984

PATIENT
  Age: 71 Year
  Sex: Male

DRUGS (12)
  1. SPIRIVA RESPIMAT [Concomitant]
     Active Substance: TIOTROPIUM BROMIDE
     Dosage: 2.5 MG, 1-0-0-0
  2. METOPROLOL. [Concomitant]
     Active Substance: METOPROLOL
     Dosage: 47.5 MG, 1-0-1-0 DIALYSETAGE:0-0-1-0
  3. PHENPRO.-RATIOPHARM [Suspect]
     Active Substance: PHENPROCOUMON
     Indication: PRODUCT USED FOR UNKNOWN INDICATION
     Dosage: 3 MG, NACH INR
  4. DIGITOXIN [Concomitant]
     Active Substance: DIGITOXIN
     Dosage: 0.07 MG, 1-0-0-0
  5. SIMVASTATIN. [Concomitant]
     Active Substance: SIMVASTATIN
     Dosage: 20 MG, 0-0-1-0
  6. RENVELA [Concomitant]
     Active Substance: SEVELAMER CARBONATE
     Dosage: 800 MG, 1-2-3-0
  7. PHOSPHONORM [Concomitant]
     Active Substance: ALUMINUM CHLOROHYDRATE
     Dosage: 1-1-1-0
  8. ALLOPURINOL. [Concomitant]
     Active Substance: ALLOPURINOL
     Dosage: 300 MG, 0-0.5-0-0
  9. FORADIL [Concomitant]
     Active Substance: FORMOTEROL FUMARATE
     Dosage: 12 UG, 1-0-1-0
  10. CLOPIDOGREL [Suspect]
     Active Substance: CLOPIDOGREL BISULFATE
     Indication: PRODUCT USED FOR UNKNOWN INDICATION
     Dosage: 75 MG, 1-0-0-0
  11. FUROBETA [Concomitant]
     Active Substance: FUROSEMIDE
     Dosage: 500 MG, 0.25-0.25-0-0 AN HD-FREIEN TAGEN
  12. BICANORM [Concomitant]
     Active Substance: SODIUM BICARBONATE
     Dosage: 1-0-1-0 SA U. SO

REACTIONS (3)
  - Post procedural haemorrhage [Unknown]
  - Syncope [Unknown]
  - Spontaneous haemorrhage [Unknown]
